FAERS Safety Report 8879147 (Version 2)
Quarter: 2012Q4

REPORT INFORMATION
  Report Type: 
  Country: US (occurrence: None)
  Receive Date: 20121102
  Receipt Date: 20121128
  Transmission Date: 20130627
  Serious: Yes (Hospitalization, Other)
  Sender: FDA-Public Use
  Company Number: None

PATIENT
  Age: 83 Year
  Sex: Female
  Weight: 47.63 kg

DRUGS (1)
  1. HYALURONIDASE [Suspect]
     Indication: CATARACT OPERATION

REACTIONS (6)
  - Fatigue [None]
  - Asthenia [None]
  - Infection [None]
  - Musculoskeletal stiffness [None]
  - Headache [None]
  - Photophobia [None]
